FAERS Safety Report 14448563 (Version 1)
Quarter: 2018Q1

REPORT INFORMATION
  Report Type: Spontaneous
  Country: US (occurrence: US)
  Receive Date: 20180126
  Receipt Date: 20180126
  Transmission Date: 20180509
  Serious: Yes (Other)
  Sender: FDA-Public Use
  Company Number: US-JNJFOC-20180118979

PATIENT
  Sex: Female

DRUGS (2)
  1. DARZALEX [Suspect]
     Active Substance: DARATUMUMAB
     Indication: PLASMA CELL MYELOMA
     Route: 042
     Dates: start: 20170802
  2. DARZALEX [Suspect]
     Active Substance: DARATUMUMAB
     Indication: POEMS SYNDROME
     Route: 042
     Dates: start: 20170802

REACTIONS (1)
  - Blood stem cell harvest failure [Unknown]
